FAERS Safety Report 11177958 (Version 1)
Quarter: 2015Q2

REPORT INFORMATION
  Report Type: Spontaneous
  Country: US (occurrence: US)
  Receive Date: 20150610
  Receipt Date: 20150610
  Transmission Date: 20150821
  Serious: No
  Sender: FDA-Public Use
  Company Number: US-PFIZER INC-2015192376

PATIENT
  Age: 66 Year
  Sex: Female

DRUGS (5)
  1. SIMVASTIN [Concomitant]
     Active Substance: SIMVASTATIN
  2. OXYCODONE [Concomitant]
     Active Substance: OXYCODONE
  3. BUPROPION [Concomitant]
     Active Substance: BUPROPION
  4. ASPIRIN. [Concomitant]
     Active Substance: ASPIRIN
  5. SUTENT [Suspect]
     Active Substance: SUNITINIB MALATE
     Indication: RENAL CANCER METASTATIC
     Dosage: UNK
     Dates: start: 201304

REACTIONS (3)
  - Functional gastrointestinal disorder [Unknown]
  - Disease progression [Unknown]
  - Renal cancer metastatic [Unknown]
